FAERS Safety Report 9858732 (Version 1)
Quarter: 2014Q1

REPORT INFORMATION
  Report Type: Spontaneous
  Country: BE (occurrence: BE)
  Receive Date: 20140131
  Receipt Date: 20140131
  Transmission Date: 20141002
  Serious: Yes (Hospitalization)
  Sender: FDA-Public Use
  Company Number: BE-ASTRAZENECA-2014SE05172

PATIENT
  Age: 29630 Day
  Sex: Female

DRUGS (14)
  1. TENORETIC [Suspect]
     Indication: BLOOD PRESSURE ABNORMAL
     Dosage: 50/12,5 MG TWICE A DAY
     Route: 048
  2. TENORETIC [Suspect]
     Indication: BLOOD PRESSURE ABNORMAL
     Dosage: 100/25 MG, DAILY
     Route: 048
     Dates: start: 20130903, end: 20130930
  3. DAFLON [Concomitant]
     Route: 048
  4. PRAXILENE [Concomitant]
     Route: 048
  5. MOXONIDINE [Concomitant]
     Route: 048
  6. SIMVASTATINE [Concomitant]
     Route: 048
  7. CETIRIZINE [Concomitant]
     Route: 048
  8. CARDIOASPIRINE [Concomitant]
     Route: 048
  9. AACIFEMINE [Concomitant]
     Route: 048
  10. CALCIUM [Concomitant]
     Route: 048
  11. TRITACE [Concomitant]
     Indication: HYPERTENSION
     Route: 048
  12. TRITACE [Concomitant]
     Indication: LEFT VENTRICULAR HYPERTROPHY
     Route: 048
  13. TRANXENE [Concomitant]
     Indication: ANXIETY
     Route: 048
  14. TRAZODONE [Concomitant]
     Indication: INSOMNIA
     Route: 048

REACTIONS (1)
  - Hyponatraemia [Recovered/Resolved]
